FAERS Safety Report 23049600 (Version 1)
Quarter: 2023Q4

REPORT INFORMATION
  Report Type: Spontaneous
  Country: None (occurrence: FR)
  Receive Date: 20231010
  Receipt Date: 20231010
  Transmission Date: 20240110
  Serious: Yes (Death, Other)
  Sender: FDA-Public Use
  Company Number: FR-B.Braun Medical Inc.-2146892

PATIENT
  Age: 33 Year
  Sex: Male

DRUGS (8)
  1. ACETAMINOPHEN [Suspect]
     Active Substance: ACETAMINOPHEN
  2. FLUOXETINE [Suspect]
     Active Substance: FLUOXETINE HYDROCHLORIDE
  3. HALOPERIDOL [Suspect]
     Active Substance: HALOPERIDOL
  4. HYDROXYZINE [Suspect]
     Active Substance: HYDROXYZINE HYDROCHLORIDE
  5. TRAMADOL [Suspect]
     Active Substance: TRAMADOL\TRAMADOL HYDROCHLORIDE
  6. DRONABINOL [Suspect]
     Active Substance: DRONABINOL
  7. ZOPICLONE [Suspect]
     Active Substance: ZOPICLONE
  8. KETOPROFEN [Suspect]
     Active Substance: KETOPROFEN

REACTIONS (3)
  - Intentional product misuse [None]
  - Toxicity to various agents [None]
  - Asphyxia [None]
